FAERS Safety Report 21403970 (Version 1)
Quarter: 2022Q4

REPORT INFORMATION
  Report Type: Report from Study
  Country: MX (occurrence: MX)
  Receive Date: 20221003
  Receipt Date: 20221003
  Transmission Date: 20230113
  Serious: Yes (Other)
  Sender: FDA-Public Use
  Company Number: MX-BAYER-2022A136043

PATIENT
  Age: 50 Year
  Sex: Male

DRUGS (2)
  1. NEXAVAR [Suspect]
     Active Substance: SORAFENIB
     Indication: Renal cell carcinoma
     Dosage: UNK
     Route: 048
     Dates: start: 20210226
  2. NEXAVAR [Suspect]
     Active Substance: SORAFENIB
     Indication: Renal cell carcinoma
     Dosage: 600 MG (400 MG IN THE MORNING AND 200 MG AT NIGHT)
     Route: 048

REACTIONS (2)
  - Fatigue [Recovered/Resolved with Sequelae]
  - Eating disorder [Recovered/Resolved with Sequelae]

NARRATIVE: CASE EVENT DATE: 20220901
